FAERS Safety Report 8046301-X (Version None)
Quarter: 2012Q1

REPORT INFORMATION
  Report Type: 
  Country: None (occurrence: None)
  Receive Date: 20120113
  Receipt Date: 20120111
  Transmission Date: 20120608
  Serious: No
  Sender: FDA-Public Use
  Company Number: US-PFIZER INC-2012008720

PATIENT
  Age: 20 Year
  Sex: Female

DRUGS (2)
  1. TRAZODONE [Concomitant]
     Indication: DEPRESSION
     Dosage: UNK
  2. ZOLOFT [Suspect]
     Indication: DEPRESSION
     Dosage: 50 MG, 1X/DAY
     Route: 048
     Dates: start: 20111226, end: 20120108

REACTIONS (1)
  - CONTUSION [None]
